FAERS Safety Report 22210429 (Version 5)
Quarter: 2023Q4

REPORT INFORMATION
  Report Type: Spontaneous
  Country: US (occurrence: US)
  Receive Date: 20230414
  Receipt Date: 20231226
  Transmission Date: 20240110
  Serious: Yes (Hospitalization)
  Sender: FDA-Public Use
  Company Number: US-BEIGENE USA INC-BGN-2023-002965

PATIENT

DRUGS (8)
  1. BRUKINSA [Suspect]
     Active Substance: ZANUBRUTINIB
     Indication: Non-Hodgkin^s lymphoma
     Dosage: 4 CAPSULES A DAY
     Route: 048
     Dates: start: 2022, end: 202302
  2. BRUKINSA [Suspect]
     Active Substance: ZANUBRUTINIB
     Indication: Chronic lymphocytic leukaemia
     Dosage: 2 CAPSULES A DAY
     Route: 048
     Dates: start: 202302
  3. BRUKINSA [Suspect]
     Active Substance: ZANUBRUTINIB
     Indication: Pelvic mass
     Dosage: 160 MILLIGRAM, BID
     Route: 048
  4. BRUKINSA [Suspect]
     Active Substance: ZANUBRUTINIB
     Indication: B-cell lymphoma
     Dosage: 80 MILLIGRAM, BID
     Route: 048
  5. ESTRADIOL [Concomitant]
     Active Substance: ESTRADIOL
     Indication: Pain
     Dosage: USED IT FOUR TIMES SO FAR
     Route: 061
  6. ESTRADIOL [Concomitant]
     Active Substance: ESTRADIOL
     Indication: Discomfort
  7. WELLBUTRIN [Concomitant]
     Active Substance: BUPROPION HYDROCHLORIDE
     Indication: Depression
     Dosage: UNK
     Dates: start: 2003
  8. OMEPRAZOLE [Concomitant]
     Active Substance: OMEPRAZOLE
     Dosage: 60 MILLIGRAM

REACTIONS (12)
  - Hypertension [Recovered/Resolved]
  - Balance disorder [Unknown]
  - Confusional state [Recovered/Resolved]
  - Dizziness [Recovered/Resolved]
  - Aphasia [Recovered/Resolved]
  - Urinary incontinence [Not Recovered/Not Resolved]
  - Pain [Unknown]
  - Discomfort [Unknown]
  - Anxiety [Not Recovered/Not Resolved]
  - Irritability [Not Recovered/Not Resolved]
  - Neuralgia [Not Recovered/Not Resolved]
  - Off label use [Unknown]

NARRATIVE: CASE EVENT DATE: 20220101
